FAERS Safety Report 17167754 (Version 1)
Quarter: 2019Q4

REPORT INFORMATION
  Report Type: Report from Study
  Country: None (occurrence: US)
  Receive Date: 20191218
  Receipt Date: 20191218
  Transmission Date: 20200122
  Serious: Yes (Other)
  Sender: FDA-Public Use
  Company Number: US-ABBVIE-19K-163-3193635-00

PATIENT
  Age: 72 Year
  Sex: Female

DRUGS (1)
  1. SYNTHROID [Suspect]
     Active Substance: LEVOTHYROXINE SODIUM
     Indication: PRODUCT USED FOR UNKNOWN INDICATION
     Route: 048
     Dates: start: 1995

REACTIONS (5)
  - Coronary artery bypass [Unknown]
  - Hypotension [Unknown]
  - Fatigue [Unknown]
  - Chemotherapy [Unknown]
  - Colon operation [Unknown]

NARRATIVE: CASE EVENT DATE: 20160706
